FAERS Safety Report 21111641 (Version 1)
Quarter: 2022Q3

REPORT INFORMATION
  Report Type: Spontaneous
  Country: CN (occurrence: CN)
  Receive Date: 20220721
  Receipt Date: 20220721
  Transmission Date: 20221027
  Serious: Yes (Other)
  Sender: FDA-Public Use
  Company Number: CN-ELI_LILLY_AND_COMPANY-CN202207006559

PATIENT
  Age: 46 Year
  Sex: Female

DRUGS (2)
  1. IXEKIZUMAB [Suspect]
     Active Substance: IXEKIZUMAB
     Indication: Psoriasis
     Dosage: 160 MG, WEEKLY (1/W)
     Route: 065
  2. IXEKIZUMAB [Suspect]
     Active Substance: IXEKIZUMAB
     Dosage: 80 MG, WEEKLY (1/W)
     Route: 065

REACTIONS (3)
  - Behcet^s syndrome [Recovered/Resolved]
  - Mouth ulceration [Recovered/Resolved]
  - Vulval ulceration [Recovered/Resolved]
